FAERS Safety Report 15122606 (Version 3)
Quarter: 2019Q1

REPORT INFORMATION
  Report Type: Report from Study
  Country: US (occurrence: US)
  Receive Date: 20180709
  Receipt Date: 20190103
  Transmission Date: 20190417
  Serious: Yes (Hospitalization, Other)
  Sender: FDA-Public Use
  Company Number: US-PURDUE PHARMA-USA-2018-0144075

PATIENT
  Age: 48 Year
  Sex: Female

DRUGS (2)
  1. OXYCODONE HYDROCHLORIDE. [Suspect]
     Active Substance: OXYCODONE HYDROCHLORIDE
     Indication: ACCIDENT AT WORK
     Dosage: 40 MG, BID
     Route: 048
     Dates: start: 2013
  2. OXYCODONE HYDROCHLORIDE. [Suspect]
     Active Substance: OXYCODONE HYDROCHLORIDE
     Indication: INTERVERTEBRAL DISC DEGENERATION
     Dosage: 40 MG, BID
     Route: 048
     Dates: start: 20180921

REACTIONS (7)
  - Abdominal pain [Unknown]
  - Urinary tract infection [Unknown]
  - Blood urine present [Unknown]
  - Abdominal pain upper [Unknown]
  - Heart rate decreased [Not Recovered/Not Resolved]
  - Back pain [Unknown]
  - Addison^s disease [Unknown]

NARRATIVE: CASE EVENT DATE: 20181225
